FAERS Safety Report 8287464-0 (Version None)
Quarter: 2012Q2

REPORT INFORMATION
  Report Type: 
  Country: None (occurrence: None)
  Receive Date: 20120410
  Receipt Date: 20120410
  Transmission Date: 20120825
  Serious: No
  Sender: FDA-Public Use
  Company Number: None

PATIENT
  Sex: Female
  Weight: 103.4201 kg

DRUGS (2)
  1. LEVOLEUCOVORIN [Suspect]
     Indication: COLON CANCER METASTATIC
     Dosage: 400 MG Q 2 WKS IV
     Route: 042
     Dates: start: 20120201
  2. FOLFOX - OXALIPLATIN [Concomitant]

REACTIONS (3)
  - PRURITUS [None]
  - URTICARIA [None]
  - INFUSION RELATED REACTION [None]
